FAERS Safety Report 9146765 (Version 1)
Quarter: 2013Q1

REPORT INFORMATION
  Report Type: Spontaneous
  Country: US (occurrence: US)
  Receive Date: 20130307
  Receipt Date: 20130307
  Transmission Date: 20140127
  Serious: No
  Sender: FDA-Public Use
  Company Number: US-009507513-1303USA000587

PATIENT
  Sex: 0

DRUGS (1)
  1. VICTRELIS [Suspect]
     Indication: HEPATITIS C
     Route: 048

REACTIONS (6)
  - Anal pruritus [Unknown]
  - Haemoglobin decreased [Unknown]
  - Anaemia [Unknown]
  - Rash [Unknown]
  - Dysgeusia [Unknown]
  - Depression [Unknown]
